FAERS Safety Report 4744190-X (Version None)
Quarter: 2005Q3

REPORT INFORMATION
  Report Type: 
  Country: None (occurrence: None)
  Receive Date: 20050809
  Receipt Date: 20050808
  Transmission Date: 20060218
  Serious: Yes (Other)
  Sender: FDA-Public Use
  Company Number: 2005S1000105

PATIENT
  Age: 64 Year
  Sex: Male

DRUGS (1)
  1. CUBICIN [Suspect]
     Indication: STAPHYLOCOCCAL INFECTION
     Dosage: 6 MG/KG/IV
     Route: 042
     Dates: end: 20050101

REACTIONS (6)
  - ABSCESS [None]
  - CATHETER SEPSIS [None]
  - ENTEROCOCCAL SEPSIS [None]
  - PATHOGEN RESISTANCE [None]
  - STAPHYLOCOCCAL INFECTION [None]
  - WOUND INFECTION [None]
